FAERS Safety Report 8657754 (Version 2)
Quarter: 2013Q2

REPORT INFORMATION
  Report Type: Spontaneous
  Country: US (occurrence: US)
  Receive Date: 20120710
  Receipt Date: 20130501
  Transmission Date: 20140414
  Serious: Yes (Other)
  Sender: FDA-Public Use
  Company Number: US-FRI-1000036797

PATIENT
  Age: 67 Year
  Sex: Female
  Weight: 116 kg

DRUGS (14)
  1. TEFLARO [Suspect]
     Indication: SKIN ULCER
     Dosage: 600 MG
     Route: 042
     Dates: start: 20120201, end: 20120327
  2. TEFLARO [Suspect]
     Indication: OSTEOMYELITIS
  3. VALSARTAN [Concomitant]
     Dosage: 160 MG
     Route: 048
  4. TAMOXIFEN [Concomitant]
     Dosage: 20 MG
     Route: 048
  5. MULTIVITAMIN [Concomitant]
  6. FLAGYL [Concomitant]
     Dosage: 2000 MG
     Route: 048
  7. HUMALOG [Concomitant]
     Dosage: 60 UNITS
     Route: 058
  8. INSULIN DETEMIR [Concomitant]
     Dosage: 100 UNITS
     Route: 058
  9. FERROUS SULFATE [Concomitant]
     Dosage: 650 MG
     Route: 048
  10. LOVENOX [Concomitant]
     Dosage: 30 MG
     Route: 058
  11. CARDURA [Concomitant]
     Dosage: 8 MG
     Route: 048
  12. BUMEX [Concomitant]
     Dosage: 6 MG
     Route: 048
  13. LIPITOR [Concomitant]
     Dosage: 10 MG
     Route: 048
  14. ATENOLOL [Concomitant]
     Dosage: 200 MG
     Route: 048

REACTIONS (1)
  - Leukopenia [Recovered/Resolved]
